FAERS Safety Report 9263460 (Version 2)
Quarter: 2013Q2

REPORT INFORMATION
  Report Type: Spontaneous
  Country: US (occurrence: None)
  Receive Date: 20130426
  Receipt Date: 20130502
  Transmission Date: 20140414
  Serious: Yes (Hospitalization)
  Sender: FDA-Public Use
  Company Number: FK201301284

PATIENT
  Age: 63 Year
  Sex: Male

DRUGS (3)
  1. PACLITAXEL (MANUFACTURER UNKNOWN) (PACLITAXEL) (PACLITAXEL) [Suspect]
     Indication: NON-SMALL CELL LUNG CANCER STAGE IIIB
  2. CARBOPLATIN (CARBOPLATIN) [Concomitant]
  3. BEVACIZUMAB (BEVACIZUMAB) [Concomitant]

REACTIONS (5)
  - Colorectal cancer stage III [None]
  - Second primary malignancy [None]
  - Metastases to lymph nodes [None]
  - Non-small cell lung cancer stage IIIB [None]
  - Malignant neoplasm progression [None]
